FAERS Safety Report 20236286 (Version 3)
Quarter: 2022Q1

REPORT INFORMATION
  Report Type: Report from Study
  Country: US (occurrence: US)
  Receive Date: 20211228
  Receipt Date: 20220209
  Transmission Date: 20220424
  Serious: Yes (Hospitalization)
  Sender: FDA-Public Use
  Company Number: US-CELGENE-USA-20211207222

PATIENT
  Age: 77 Year
  Sex: Male
  Weight: 81.7 kg

DRUGS (9)
  1. LISOCABTAGENE MARALEUCEL [Suspect]
     Active Substance: LISOCABTAGENE MARALEUCEL
     Indication: Mantle cell lymphoma
     Dosage: 1 X 10^8 CAR + T CELLS
     Route: 041
     Dates: start: 20210308, end: 20210308
  2. CYCLOPHOSPHAMIDE [Suspect]
     Active Substance: CYCLOPHOSPHAMIDE
     Indication: Mantle cell lymphoma
     Dosage: 620 MILLIGRAM
     Route: 041
     Dates: start: 20210303, end: 20210305
  3. FLUDARABINE [Suspect]
     Active Substance: FLUDARABINE PHOSPHATE
     Indication: Mantle cell lymphoma
     Dosage: 48.75 MILLIGRAM
     Route: 041
     Dates: start: 20210303, end: 20210305
  4. ZOLPIDEM [Concomitant]
     Active Substance: ZOLPIDEM TARTRATE
     Indication: Insomnia
     Route: 048
     Dates: start: 20191104
  5. VALSARTAN [Concomitant]
     Active Substance: VALSARTAN
     Indication: Prophylaxis
     Dosage: 20 MILLIGRAM
     Route: 048
     Dates: start: 20210121, end: 20210304
  6. VALSARTAN [Concomitant]
     Active Substance: VALSARTAN
     Dosage: 20 MILLIGRAM
     Route: 048
     Dates: start: 20210408
  7. SULFAMETHOXAZOLE\TRIMETHOPRIM [Concomitant]
     Active Substance: SULFAMETHOXAZOLE\TRIMETHOPRIM
     Indication: Antibiotic prophylaxis
     Dosage: 800-160 MG
     Route: 048
     Dates: start: 20210407
  8. FAMOTIDINE [Concomitant]
     Active Substance: FAMOTIDINE
     Indication: Gastrooesophageal reflux prophylaxis
     Dosage: 20 MILLIGRAM
     Route: 048
     Dates: start: 20210317
  9. VALACYCLOVIR [Concomitant]
     Active Substance: VALACYCLOVIR HYDROCHLORIDE
     Indication: Antiviral prophylaxis
     Dosage: 500 MILLIGRAM
     Route: 048
     Dates: start: 20210307

REACTIONS (1)
  - COVID-19 pneumonia [Not Recovered/Not Resolved]

NARRATIVE: CASE EVENT DATE: 20211217
